FAERS Safety Report 21452639 (Version 1)
Quarter: 2022Q4

REPORT INFORMATION
  Report Type: Spontaneous
  Country: IT (occurrence: IT)
  Receive Date: 20221013
  Receipt Date: 20221013
  Transmission Date: 20230112
  Serious: Yes (Other)
  Sender: FDA-Public Use
  Company Number: IT-MYLANLABS-2022M1112721

PATIENT
  Age: 3 Year
  Sex: Male

DRUGS (3)
  1. PREDNISONE [Suspect]
     Active Substance: PREDNISONE
     Indication: Prophylaxis
     Dosage: 1 MILLIGRAM/KILOGRAM, QD,1 MG/KG/DAY OF PREDNISONE 3 DAYS BEFORE OA INFUSION, APPROXIMATELY 1 WEEK
     Route: 065
  2. ONASEMNOGENE ABEPARVOVEC [Concomitant]
     Active Substance: ONASEMNOGENE ABEPARVOVEC
     Indication: Spinal muscular atrophy
     Dosage: UNK, INFUSION, DOSE: 1.1 X 10*14 VG/KG
     Route: 065
  3. AMPICILLIN [Concomitant]
     Active Substance: AMPICILLIN
     Indication: Leukocytosis
     Dosage: UNK
     Route: 065

REACTIONS (1)
  - Drug ineffective [Unknown]
